FAERS Safety Report 8969263 (Version 1)
Quarter: 2012Q4

REPORT INFORMATION
  Report Type: 
  Country: US (occurrence: US)
  Receive Date: 20121218
  Receipt Date: 20121218
  Transmission Date: 20130627
  Serious: No
  Sender: FDA-Public Use
  Company Number: US-BRISTOL-MYERS SQUIBB COMPANY-16677841

PATIENT
  Age: 73 Year
  Sex: Female

DRUGS (5)
  1. ABILIFY [Suspect]
     Indication: BIPOLAR DISORDER
  2. CYMBALTA [Suspect]
     Indication: BIPOLAR DISORDER
  3. TOPIRAMATE [Suspect]
  4. TRICOR [Suspect]
  5. VITAMIN B12 [Suspect]

REACTIONS (6)
  - Weight increased [Unknown]
  - Somnolence [Unknown]
  - Blood glucose increased [Unknown]
  - Blood cholesterol increased [Unknown]
  - Confusional state [Unknown]
  - Asthenia [Unknown]
